FAERS Safety Report 13607834 (Version 2)
Quarter: 2018Q4

REPORT INFORMATION
  Report Type: Report from Study
  Country: KR (occurrence: KR)
  Receive Date: 20170602
  Receipt Date: 20181217
  Transmission Date: 20190204
  Serious: Yes (Death, Hospitalization)
  Sender: FDA-Public Use
  Company Number: KR-EISAI MEDICAL RESEARCH-EC-2017-027966

PATIENT
  Age: 75 Year
  Sex: Female
  Weight: 54 kg

DRUGS (12)
  1. NEUROMED [Concomitant]
  2. CAROL-F-TAB [Concomitant]
  3. TRAJENTA DUO [Concomitant]
     Active Substance: LINAGLIPTIN\METFORMIN HYDROCHLORIDE
  4. MUCOSTA [Concomitant]
     Active Substance: REBAMIPIDE
  5. MICARDIS [Concomitant]
     Active Substance: TELMISARTAN
  6. BEECOM-HEXA [Concomitant]
  7. TWYNSTA [Concomitant]
     Active Substance: AMLODIPINE BESYLATE\TELMISARTAN
  8. DICKNOL [Concomitant]
     Active Substance: DICLOFENAC DEANOL
  9. LEVIROTIN [Concomitant]
  10. KEPPRA [Concomitant]
     Active Substance: LEVETIRACETAM
  11. FYCOMPA [Suspect]
     Active Substance: PERAMPANEL
     Indication: SEIZURE
     Route: 048
     Dates: start: 20160920, end: 20161021
  12. ASCORBIC ACID. [Concomitant]
     Active Substance: ASCORBIC ACID

REACTIONS (1)
  - Mental status changes [Fatal]

NARRATIVE: CASE EVENT DATE: 20161008
